FAERS Safety Report 4438895-8 (Version None)
Quarter: 2004Q3

REPORT INFORMATION
  Report Type: 
  Country: None (occurrence: None)
  Receive Date: 20040830
  Receipt Date: 20040817
  Transmission Date: 20050211
  Serious: Yes (Other)
  Sender: FDA-Public Use
  Company Number: 2003019890

PATIENT
  Sex: Male

DRUGS (3)
  1. GEODON [Suspect]
     Indication: ILL-DEFINED DISORDER
     Dosage: ORAL
     Route: 048
  2. CLONAZEPAM [Suspect]
     Indication: ILL-DEFINED DISORDER
  3. ETHANOL (ETHANOL) [Suspect]
     Indication: ILL-DEFINED DISORDER

REACTIONS (3)
  - ALCOHOL USE [None]
  - MULTIPLE DRUG OVERDOSE [None]
  - TORSADE DE POINTES [None]
